FAERS Safety Report 8458149-2 (Version None)
Quarter: 2012Q2

REPORT INFORMATION
  Report Type: 
  Country: None (occurrence: None)
  Receive Date: 20120622
  Receipt Date: 20120612
  Transmission Date: 20120825
  Serious: Yes (Hospitalization, Other)
  Sender: FDA-Public Use
  Company Number: ES-JNJFOC-20090709484

PATIENT
  Age: 79 Year
  Sex: Female

DRUGS (7)
  1. METHOTREXATE [Concomitant]
  2. BISPHOSPHONATES [Concomitant]
  3. NSAIDS [Concomitant]
  4. OMEPRAZOLE [Concomitant]
  5. FOLIC ACID [Concomitant]
  6. REMICADE [Suspect]
     Indication: RHEUMATOID ARTHRITIS
     Dosage: DOSE REPORTED AS ^3^ (UNITS NOT PROVIDED)
     Route: 042
     Dates: start: 20001130, end: 20050501
  7. CALCIUM AND VITAMIN D [Concomitant]

REACTIONS (2)
  - PNEUMONIA [None]
  - TUBERCULOSIS [None]
